FAERS Safety Report 8274658-3 (Version None)
Quarter: 2012Q2

REPORT INFORMATION
  Report Type: 
  Country: None (occurrence: None)
  Receive Date: 20120411
  Receipt Date: 20120322
  Transmission Date: 20120825
  Serious: Yes (Other)
  Sender: FDA-Public Use
  Company Number: JP-GLAXOSMITHKLINE-B0790896A

PATIENT
  Age: 80 Year
  Sex: Female

DRUGS (3)
  1. VALTREX [Suspect]
     Indication: PRODUCT USED FOR UNKNOWN INDICATION
     Route: 048
  2. AMLODIPINE [Concomitant]
     Route: 048
     Dates: end: 20110101
  3. CANDESARTAN CILEXETIL [Concomitant]
     Route: 048

REACTIONS (1)
  - DELIRIUM [None]
